FAERS Safety Report 5708047-X (Version None)
Quarter: 2008Q2

REPORT INFORMATION
  Report Type: 
  Country: None (occurrence: None)
  Receive Date: 20080417
  Receipt Date: 20080410
  Transmission Date: 20081010
  Serious: Yes (Disabling)
  Sender: FDA-Public Use
  Company Number: FR-AVENTIS-200811333FR

PATIENT
  Age: 60 Year
  Sex: Male

DRUGS (1)
  1. RIFINAH [Suspect]
     Indication: PULMONARY TUBERCULOSIS
     Route: 048
     Dates: start: 20070801, end: 20080201

REACTIONS (1)
  - PERIARTHRITIS [None]
